FAERS Safety Report 16401397 (Version 1)
Quarter: 2019Q2

REPORT INFORMATION
  Report Type: Spontaneous
  Country: US (occurrence: US)
  Receive Date: 20190606
  Receipt Date: 20190606
  Transmission Date: 20190711
  Serious: No
  Sender: FDA-Public Use
  Company Number: US-PTC THERAPEUTICS, INC.-US-2019PTC000515

PATIENT
  Sex: Male

DRUGS (1)
  1. EMFLAZA [Suspect]
     Active Substance: DEFLAZACORT
     Indication: DUCHENNE MUSCULAR DYSTROPHY
     Dosage: 18 MG, QD
     Route: 048
     Dates: start: 20180627

REACTIONS (9)
  - Limb injury [Unknown]
  - Attention-seeking behaviour [Unknown]
  - Energy increased [Unknown]
  - Toe walking [Unknown]
  - Disturbance in attention [Recovering/Resolving]
  - Hyperaesthesia [Unknown]
  - Aggression [Recovering/Resolving]
  - Behaviour disorder [Recovering/Resolving]
  - Fall [Unknown]
